FAERS Safety Report 11420146 (Version 1)
Quarter: 2015Q3

REPORT INFORMATION
  Report Type: Spontaneous
  Country: US (occurrence: None)
  Receive Date: 20150825
  Receipt Date: 20150825
  Transmission Date: 20151125
  Serious: Yes (Life-Threatening, Hospitalization)
  Sender: FDA-Public Use
  Company Number: None

PATIENT
  Age: 61 Year
  Sex: Female
  Weight: 73.3 kg

DRUGS (12)
  1. LEVOTHYROXINE (SYNTHORID, LEVOTHROID) [Concomitant]
  2. LOSARTAN (COZAAR) [Concomitant]
  3. NIFEDIPINE. [Concomitant]
     Active Substance: NIFEDIPINE
  4. OMBITASVIR, PARITAPREVIR, RITONAVIR 0.:12.5MG P.: 75MG, R.: 50MG ABBIE INC. [Suspect]
     Active Substance: OMBITASVIR\PARITAPREVIR\RITONAVIR
     Indication: HEPATITIS C
     Route: 048
     Dates: start: 20150803, end: 20150812
  5. DASABUVIR [Suspect]
     Active Substance: DASABUVIR
     Indication: HEPATITIS C
     Route: 048
     Dates: start: 20150803, end: 20150812
  6. CIPROFLOXACIN HCL (CIPRO) [Concomitant]
  7. METFORMIN [Concomitant]
     Active Substance: METFORMIN HYDROCHLORIDE
  8. CHLORPHENIRAMINE (CHLOR-TRIMETON) [Concomitant]
  9. METRONIDAZOLE (FLAGYL) [Concomitant]
  10. DOCUSATE SODIM (COLACE) [Concomitant]
  11. INSULIN DETEMIR (LEVEMIR FLEXPEN) [Concomitant]
  12. FLUTICASONE (FLONASE) [Concomitant]

REACTIONS (6)
  - Dialysis [None]
  - Abdominal pain [None]
  - Nausea [None]
  - Respiratory distress [None]
  - Vomiting [None]
  - Lactic acidosis [None]

NARRATIVE: CASE EVENT DATE: 20150812
